FAERS Safety Report 17704926 (Version 2)
Quarter: 2020Q2

REPORT INFORMATION
  Report Type: Spontaneous
  Country: US (occurrence: US)
  Receive Date: 20200424
  Receipt Date: 20200515
  Transmission Date: 20200714
  Serious: No
  Sender: FDA-Public Use
  Company Number: US-SUNOVION-2020SUN001192

PATIENT
  Age: 75 Year
  Sex: Male

DRUGS (2)
  1. LONHALA MAGNAIR [Suspect]
     Active Substance: GLYCOPYRROLATE
     Dosage: 25 ?G
     Route: 055
  2. ENCRUSE [Concomitant]
     Active Substance: UMECLIDINIUM BROMIDE

REACTIONS (4)
  - Respiration abnormal [Unknown]
  - Therapy interrupted [Unknown]
  - Anxiety [Unknown]
  - Incorrect dose administered [Unknown]
